FAERS Safety Report 13499672 (Version 1)
Quarter: 2017Q2

REPORT INFORMATION
  Report Type: Spontaneous
  Country: IL (occurrence: IL)
  Receive Date: 20170501
  Receipt Date: 20170501
  Transmission Date: 20170830
  Serious: Yes (Hospitalization)
  Sender: FDA-Public Use
  Company Number: IL-TEVA-762280ACC

PATIENT
  Age: 58 Year
  Sex: Female

DRUGS (11)
  1. CARDILOC [Concomitant]
     Active Substance: BISOPROLOL FUMARATE
  2. CONTROLOC [Concomitant]
     Active Substance: PANTOPRAZOLE SODIUM
  3. VENLAFAXINE [Suspect]
     Active Substance: VENLAFAXINE HYDROCHLORIDE
     Indication: SCHIZOPHRENIA
     Dosage: 75 MILLIGRAM DAILY;
     Dates: start: 20160602, end: 20160914
  4. VENLAFAXINE [Suspect]
     Active Substance: VENLAFAXINE HYDROCHLORIDE
     Indication: DEPRESSION
  5. APIDRA [Concomitant]
     Active Substance: INSULIN GLULISINE
  6. LINS LANTUS [Concomitant]
  7. FUSID [Concomitant]
     Active Substance: FUROSEMIDE
  8. MICROPIRIN [Concomitant]
     Active Substance: ASPIRIN
  9. DEPALEPT [Concomitant]
     Active Substance: VALPROIC ACID
  10. LIPITOR [Concomitant]
     Active Substance: ATORVASTATIN CALCIUM
  11. SEROQUEL [Concomitant]
     Active Substance: QUETIAPINE FUMARATE

REACTIONS (4)
  - Fall [Unknown]
  - Blood sodium increased [Unknown]
  - Head injury [Unknown]
  - Syncope [Unknown]

NARRATIVE: CASE EVENT DATE: 20160801
